FAERS Safety Report 5081156-7 (Version None)
Quarter: 2006Q3

REPORT INFORMATION
  Report Type: 
  Country: None (occurrence: None)
  Receive Date: 20060814
  Receipt Date: 20060814
  Transmission Date: 20061208
  Serious: No
  Sender: FDA-Public Use
  Company Number: None

PATIENT
  Age: 83 Year
  Sex: Female

DRUGS (1)
  1. XELODA [Suspect]
     Indication: BREAST CANCER
     Dosage: 3 TABS TWICE DAILY PO
     Route: 048
     Dates: start: 20050309, end: 20050323

REACTIONS (1)
  - CEREBROVASCULAR ACCIDENT [None]
